FAERS Safety Report 15902984 (Version 1)
Quarter: 2019Q1

REPORT INFORMATION
  Report Type: Spontaneous
  Country: US (occurrence: US)
  Receive Date: 20190202
  Receipt Date: 20190202
  Transmission Date: 20190417
  Serious: No
  Sender: FDA-Public Use
  Company Number: US-SUN PHARMACEUTICAL INDUSTRIES LTD-2018R1-195154

PATIENT
  Sex: Female

DRUGS (3)
  1. DUREZOL [Concomitant]
     Active Substance: DIFLUPREDNATE
     Indication: PRODUCT USED FOR UNKNOWN INDICATION
     Dosage: UNK
     Route: 065
  2. BROMSITE [Suspect]
     Active Substance: BROMFENAC SODIUM
     Indication: PRODUCT USED FOR UNKNOWN INDICATION
     Dosage: UNK UNK, TID (3 TIMES A DAY FOR ONE WEEK)
     Route: 047
  3. BROMSITE [Suspect]
     Active Substance: BROMFENAC SODIUM
     Dosage: UNK UNK, DAILY (PUTTING ONE DROP IN HER EYE DAILY)
     Route: 047

REACTIONS (6)
  - Headache [Unknown]
  - Off label use [Unknown]
  - Acne [Unknown]
  - Eye pain [Unknown]
  - Skin mass [Unknown]
  - Pruritus [Unknown]
